FAERS Safety Report 25800270 (Version 1)
Quarter: 2025Q3

REPORT INFORMATION
  Report Type: Spontaneous
  Country: YE (occurrence: YE)
  Receive Date: 20250915
  Receipt Date: 20250915
  Transmission Date: 20251021
  Serious: Yes (Other)
  Sender: MICRO LABS
  Company Number: YE-862174955-ML2025-04639

PATIENT
  Age: 25 Year
  Sex: Male

DRUGS (4)
  1. DEXAMETHASONE [Suspect]
     Active Substance: DEXAMETHASONE
     Indication: Upper respiratory tract infection
  2. DEXAMETHASONE [Suspect]
     Active Substance: DEXAMETHASONE
  3. DEXAMETHASONE [Suspect]
     Active Substance: DEXAMETHASONE
     Dosage: ORAL DEXAMETHASONE 2 MG DAILY AND THE DOSE WAS TAPERED TO 1 MG DAILY AFTER A FEW WEEKS
     Route: 048
  4. DEXAMETHASONE [Suspect]
     Active Substance: DEXAMETHASONE
     Dosage: ORAL DEXAMETHASONE 2 MG DAILY AND THE DOSE WAS TAPERED TO 1 MG DAILY AFTER A FEW WEEKS

REACTIONS (4)
  - Cushing^s syndrome [Unknown]
  - Intentional product misuse [Unknown]
  - Secondary adrenocortical insufficiency [Unknown]
  - Hyperglycaemia [Unknown]
